FAERS Safety Report 9330879 (Version 1)
Quarter: 2013Q2

REPORT INFORMATION
  Report Type: Spontaneous
  Country: US (occurrence: None)
  Receive Date: 20130531
  Receipt Date: 20130531
  Transmission Date: 20140414
  Serious: Yes (Hospitalization)
  Sender: FDA-Public Use
  Company Number: CA-ALSI-201300128

PATIENT
  Age: 3 Month
  Sex: Male
  Weight: 6 kg

DRUGS (2)
  1. NITROUS OXIDE [Suspect]
     Route: 055
  2. HALOTHANE [Suspect]
     Route: 055

REACTIONS (4)
  - Anaphylactoid reaction [None]
  - Laryngospasm [None]
  - Respiratory arrest [None]
  - Respiratory disorder [None]
